FAERS Safety Report 4681245-2 (Version None)
Quarter: 2005Q2

REPORT INFORMATION
  Report Type: 
  Country: None (occurrence: None)
  Receive Date: 20050603
  Receipt Date: 20050520
  Transmission Date: 20051028
  Serious: Yes (Hospitalization)
  Sender: FDA-Public Use
  Company Number: CH-JNJFOC-20050505347

PATIENT
  Age: 32 Year
  Sex: Male

DRUGS (5)
  1. HALDOL [Suspect]
     Route: 049
     Dates: start: 20040923, end: 20040925
  2. HALDOL [Suspect]
     Indication: SLEEP DISORDER
     Route: 049
     Dates: start: 20040923, end: 20040925
  3. DAFALGAN [Suspect]
     Indication: PAIN
     Dosage: DOSE: 4 DOSAGE FORMS (STRENGTH NOT SPECIFIED) TOTAL
     Route: 049
     Dates: start: 20040925, end: 20040925
  4. VOLTAREN [Suspect]
     Indication: PAIN
     Route: 030
     Dates: start: 20040925, end: 20040925
  5. DALMADORM [Concomitant]
     Route: 049
     Dates: start: 20040901, end: 20040925

REACTIONS (4)
  - DYSPNOEA [None]
  - DYSTONIA [None]
  - PANIC ATTACK [None]
  - TACHYCARDIA [None]
